FAERS Safety Report 6154030-2 (Version None)
Quarter: 2009Q2

REPORT INFORMATION
  Report Type: 
  Country: None (occurrence: None)
  Receive Date: 20090414
  Receipt Date: 20090406
  Transmission Date: 20091009
  Serious: Yes (Hospitalization)
  Sender: FDA-Public Use
  Company Number: PHHY2009JP13611

PATIENT
  Age: 36 Year
  Sex: Female

DRUGS (1)
  1. GLEEVEC [Suspect]
     Indication: CHRONIC MYELOID LEUKAEMIA
     Dosage: 400 MG/DAY
     Route: 048
     Dates: start: 20090326, end: 20090402

REACTIONS (5)
  - ABDOMINAL PAIN [None]
  - INFLAMMATION [None]
  - PANNICULITIS [None]
  - PYREXIA [None]
  - RASH GENERALISED [None]
